FAERS Safety Report 12880951 (Version 1)
Quarter: 2016Q4

REPORT INFORMATION
  Report Type: Spontaneous
  Country: US (occurrence: US)
  Receive Date: 20161024
  Receipt Date: 20161024
  Transmission Date: 20170207
  Serious: No
  Sender: FDA-Public Use
  Company Number: None

PATIENT
  Age: 49 Year
  Sex: Female
  Weight: 65.25 kg

DRUGS (2)
  1. DULOXETINE. [Suspect]
     Active Substance: DULOXETINE
     Indication: DEPRESSION
     Dosage: ?          QUANTITY: .25 CAPSULE(S);?
     Route: 048
  2. DULOXETINE. [Suspect]
     Active Substance: DULOXETINE
     Indication: NEURALGIA
     Dosage: ?          QUANTITY: .25 CAPSULE(S);?
     Route: 048

REACTIONS (6)
  - Withdrawal syndrome [None]
  - Anger [None]
  - Feeling abnormal [None]
  - Paraesthesia [None]
  - Dizziness [None]
  - Irritability [None]

NARRATIVE: CASE EVENT DATE: 20160401
